FAERS Safety Report 15166018 (Version 1)
Quarter: 2018Q3

REPORT INFORMATION
  Report Type: Spontaneous
  Country: US (occurrence: US)
  Receive Date: 20180719
  Receipt Date: 20180719
  Transmission Date: 20181010
  Serious: Yes (Other)
  Sender: FDA-Public Use
  Company Number: US-PFIZER INC-2018287290

PATIENT
  Age: 16 Year
  Sex: Male

DRUGS (2)
  1. GENOTROPIN [Suspect]
     Active Substance: SOMATROPIN
     Dosage: UNK
     Dates: start: 20180312
  2. GENOTROPIN [Suspect]
     Active Substance: SOMATROPIN
     Indication: GROWTH HORMONE DEFICIENCY
     Dosage: 1.4 MG, DAILY
     Dates: start: 20170908

REACTIONS (9)
  - Migraine [Unknown]
  - Drug dose omission [Unknown]
  - Headache [Unknown]
  - Blood phosphorus increased [Unknown]
  - Blood creatinine decreased [Unknown]
  - Vomiting [Unknown]
  - Seizure [Recovered/Resolved]
  - High density lipoprotein decreased [Unknown]
  - Blood 25-hydroxycholecalciferol decreased [Unknown]
